FAERS Safety Report 8092418-3 (Version None)
Quarter: 2012Q1

REPORT INFORMATION
  Report Type: 
  Country: None (occurrence: None)
  Receive Date: 20120128
  Receipt Date: 20110831
  Transmission Date: 20120608
  Serious: No
  Sender: FDA-Public Use
  Company Number: US-ABBOTT-11P-163-0851762-00

PATIENT
  Sex: Female
  Weight: 44.492 kg

DRUGS (4)
  1. PENTASA [Concomitant]
     Indication: CROHN'S DISEASE
  2. MULTI-VITAMIN [Concomitant]
     Indication: SUPPLEMENTATION THERAPY
  3. MERCAPTOPURINE [Concomitant]
     Indication: CROHN'S DISEASE
  4. HUMIRA [Suspect]
     Indication: CROHN'S DISEASE
     Route: 058
     Dates: start: 20110501

REACTIONS (1)
  - INJECTION SITE HAEMORRHAGE [None]
